FAERS Safety Report 20492799 (Version 7)
Quarter: 2024Q2

REPORT INFORMATION
  Report Type: Spontaneous
  Country: IT (occurrence: IT)
  Receive Date: 20220219
  Receipt Date: 20240425
  Transmission Date: 20240716
  Serious: Yes (Other)
  Sender: FDA-Public Use
  Company Number: IT-NOVARTISPH-NVSC2022IT036885

PATIENT
  Age: 56 Year
  Sex: Female

DRUGS (3)
  1. IMATINIB MESYLATE [Suspect]
     Active Substance: IMATINIB MESYLATE
     Indication: Systemic mastocytosis
     Dosage: 400 MG, QD
     Route: 065
  2. IMATINIB MESYLATE [Suspect]
     Active Substance: IMATINIB MESYLATE
     Indication: Myelodysplastic syndrome
     Dosage: 100 MG, QD
     Route: 065
  3. IMATINIB MESYLATE [Suspect]
     Active Substance: IMATINIB MESYLATE
     Indication: Myeloproliferative neoplasm
     Dosage: 200 MG, QD
     Route: 065

REACTIONS (2)
  - Thrombocytopenia [Recovered/Resolved]
  - Fluid retention [Not Recovered/Not Resolved]
